FAERS Safety Report 6448709-2 (Version None)
Quarter: 2009Q4

REPORT INFORMATION
  Report Type: 
  Country: None (occurrence: None)
  Receive Date: 20091119
  Receipt Date: 20091119
  Transmission Date: 20100525
  Serious: Yes (Hospitalization)
  Sender: FDA-Public Use
  Company Number: None

PATIENT
  Sex: Male
  Weight: 66.2 kg

DRUGS (1)
  1. CISPLATIN [Suspect]
     Dosage: 378 MG
     Dates: end: 20090210

REACTIONS (4)
  - DYSPHAGIA [None]
  - JAW DISORDER [None]
  - LOCALISED OEDEMA [None]
  - PHARYNGEAL OEDEMA [None]
